FAERS Safety Report 9396241 (Version 2)
Quarter: 2013Q3

REPORT INFORMATION
  Report Type: Spontaneous
  Country: ES (occurrence: ES)
  Receive Date: 20130711
  Receipt Date: 20130821
  Transmission Date: 20140515
  Serious: Yes (Hospitalization, Other)
  Sender: FDA-Public Use
  Company Number: ES-PFIZER INC-2013199774

PATIENT
  Age: 76 Year
  Sex: Female

DRUGS (7)
  1. TOVIAZ [Suspect]
     Indication: URINARY INCONTINENCE
     Dosage: UNK
     Route: 048
     Dates: start: 20130509, end: 20130527
  2. AMLODIPINE [Concomitant]
     Dosage: 5UNK 1DF/12 HRS
  3. MICARDIS [Concomitant]
     Dosage: 1 DF, 1X/DAY
  4. LANSOPRAZOLE [Concomitant]
     Dosage: 1 DF, 1X/24 HOURS
  5. ALLOPURINOL [Concomitant]
     Dosage: 300 UNK, 1 DF/DAY
  6. LIPOSIT PROLIB [Concomitant]
     Dosage: 80 UNK, 1DF/DAY
  7. CARDURAN NEO [Concomitant]
     Dosage: 8 UNK, 1DF/DAY

REACTIONS (7)
  - Confusional state [Recovered/Resolved]
  - Vascular encephalopathy [Unknown]
  - Electroencephalogram abnormal [Unknown]
  - Renal failure acute [Not Recovered/Not Resolved]
  - IgA nephropathy [Unknown]
  - Tubulointerstitial nephritis [Unknown]
  - Renal tubular necrosis [Unknown]
